FAERS Safety Report 8528885-8 (Version None)
Quarter: 2012Q3

REPORT INFORMATION
  Report Type: 
  Country: None (occurrence: None)
  Receive Date: 20120723
  Receipt Date: 20120718
  Transmission Date: 20120928
  Serious: No
  Sender: FDA-Public Use
  Company Number: US-PFIZER INC-2012176105

PATIENT
  Sex: Male
  Weight: 124 kg

DRUGS (2)
  1. ALPRAZOLAM [Suspect]
     Dosage: UNK
  2. PAROXETINE HCL [Suspect]
     Dosage: UNK

REACTIONS (1)
  - DRUG INEFFECTIVE [None]
